FAERS Safety Report 19683928 (Version 1)
Quarter: 2021Q3

REPORT INFORMATION
  Report Type: Spontaneous
  Country: US (occurrence: US)
  Receive Date: 20210811
  Receipt Date: 20210811
  Transmission Date: 20211014
  Serious: No
  Sender: FDA-Public Use
  Company Number: US-LUPIN PHARMACEUTICALS INC.-2021-14299

PATIENT

DRUGS (2)
  1. BUDESONIDE. [Suspect]
     Active Substance: BUDESONIDE
     Indication: TRANSPLANT REJECTION
     Dosage: UNK UNK, QD,  INITIAL DOSE, CAPSULE
     Route: 048
  2. BUDESONIDE. [Suspect]
     Active Substance: BUDESONIDE
     Dosage: 3 MILLIGRAM, QD, CAPSULE
     Route: 048

REACTIONS (2)
  - Off label use [Unknown]
  - Rebound effect [Unknown]
